FAERS Safety Report 5960675-2 (Version None)
Quarter: 2008Q4

REPORT INFORMATION
  Report Type: 
  Country: None (occurrence: None)
  Receive Date: 20081120
  Receipt Date: 20081113
  Transmission Date: 20090506
  Serious: Yes (Disabling, Other)
  Sender: FDA-Public Use
  Company Number: JP-PFIZER INC-2008087867

PATIENT
  Sex: Male
  Weight: 57 kg

DRUGS (4)
  1. CHAMPIX [Suspect]
     Dosage: DAILY DOSE:2MG
     Route: 048
     Dates: start: 20080703, end: 20081001
  2. MYSLEE [Suspect]
     Indication: INSOMNIA
     Route: 048
     Dates: start: 20080327, end: 20081001
  3. NORVASC [Concomitant]
     Route: 048
     Dates: start: 20060629, end: 20081001
  4. DEPAS [Concomitant]
     Route: 048

REACTIONS (4)
  - COGNITIVE DISORDER [None]
  - DEPRESSION SUICIDAL [None]
  - INSOMNIA [None]
  - NIGHTMARE [None]
